FAERS Safety Report 4828367-0 (Version None)
Quarter: 2005Q4

REPORT INFORMATION
  Report Type: 
  Country: None (occurrence: None)
  Receive Date: 20051115
  Receipt Date: 20050802
  Transmission Date: 20060501
  Serious: Yes (Death, Hospitalization, Other)
  Sender: FDA-Public Use
  Company Number: US-MERCK-0508USA01117

PATIENT
  Age: 73 Year
  Sex: Female
  Weight: 61 kg

DRUGS (9)
  1. METOPROLOL SUCCINATE [Concomitant]
     Route: 065
  2. METOPROLOL SUCCINATE [Concomitant]
     Route: 065
  3. FOLIC ACID [Concomitant]
     Route: 065
  4. ACETAMINOPHEN AND PROPOXYPHENE NAPSYLATE [Concomitant]
     Route: 065
  5. VIOXX [Suspect]
     Indication: ARTHRITIS
     Route: 048
     Dates: start: 19990930, end: 20030724
  6. DURAGESIC-100 [Concomitant]
     Route: 061
  7. COUMADIN [Concomitant]
     Route: 065
  8. METOPROLOL SUCCINATE [Concomitant]
     Route: 065
  9. METOPROLOL SUCCINATE [Concomitant]
     Route: 065

REACTIONS (22)
  - ACUTE RESPIRATORY FAILURE [None]
  - ARTERIAL THROMBOSIS LIMB [None]
  - ATRIAL FIBRILLATION [None]
  - BLOOD GLUCOSE INCREASED [None]
  - BRONCHITIS [None]
  - CEREBROVASCULAR ACCIDENT [None]
  - CONSTIPATION [None]
  - DEEP VEIN THROMBOSIS [None]
  - DEPRESSION [None]
  - FLANK PAIN [None]
  - GASTRITIS [None]
  - HEART RATE IRREGULAR [None]
  - HYPOPROTHROMBINAEMIA [None]
  - HYPOTENSION [None]
  - MACROCYTOSIS [None]
  - MUSCLE SPASMS [None]
  - OCCULT BLOOD POSITIVE [None]
  - PARALYSIS [None]
  - PNEUMONIA ASPIRATION [None]
  - RED BLOOD CELL SEDIMENTATION RATE INCREASED [None]
  - RIB FRACTURE [None]
  - THROMBOSIS [None]
